FAERS Safety Report 18268103 (Version 1)
Quarter: 2020Q3

REPORT INFORMATION
  Report Type: Spontaneous
  Country: US (occurrence: US)
  Receive Date: 20200915
  Receipt Date: 20200915
  Transmission Date: 20201103
  Serious: Yes (Other)
  Sender: FDA-Public Use
  Company Number: None

PATIENT
  Age: 91 Year
  Sex: Female
  Weight: 52.7 kg

DRUGS (3)
  1. CEFTAZIDIME. [Concomitant]
     Active Substance: CEFTAZIDIME
     Dates: start: 20200912
  2. HEPARIN INFUSION [Concomitant]
     Dates: start: 20200915
  3. REMDESIVIR. [Suspect]
     Active Substance: REMDESIVIR
     Indication: COVID-19
     Route: 041

REACTIONS (1)
  - Blood creatinine increased [None]

NARRATIVE: CASE EVENT DATE: 20200915
